FAERS Safety Report 18249751 (Version 1)
Quarter: 2020Q3

REPORT INFORMATION
  Report Type: Spontaneous
  Country: US (occurrence: US)
  Receive Date: 20200909
  Receipt Date: 20200909
  Transmission Date: 20201103
  Serious: No
  Sender: FDA-Public Use
  Company Number: US-VERTEX PHARMACEUTICALS-2020-017858

PATIENT
  Sex: Male
  Weight: 83 kg

DRUGS (4)
  1. HYPERSAL [Concomitant]
     Active Substance: SODIUM CHLORIDE
     Dosage: 7 %
     Route: 055
  2. TRIKAFTA [Suspect]
     Active Substance: ELEXACAFTOR\IVACAFTOR\TEZACAFTOR
     Indication: CYSTIC FIBROSIS
     Dosage: 100MG ELEXACAFTOR/50MG TEZACAFTOR/75MG IVACAFTOR AND 150MG IVACAFTOR, BID
     Route: 048
  3. CREON [Concomitant]
     Active Substance: PANCRELIPASE AMYLASE\PANCRELIPASE LIPASE\PANCRELIPASE PROTEASE
     Dosage: 12?38?60K
  4. PULMOZYME [Concomitant]
     Active Substance: DORNASE ALFA
     Dosage: 1 MILLIGRAM PER MILLILITRE, BID

REACTIONS (3)
  - Sputum discoloured [Recovered/Resolved]
  - Increased viscosity of bronchial secretion [Recovered/Resolved]
  - Cough [Recovered/Resolved]
